FAERS Safety Report 10249505 (Version 1)
Quarter: 2014Q2

REPORT INFORMATION
  Report Type: Spontaneous
  Country: US (occurrence: None)
  Receive Date: 20140619
  Receipt Date: 20140619
  Transmission Date: 20141212
  Serious: Yes (Life-Threatening, Hospitalization, Disabling, Other)
  Sender: FDA-Public Use
  Company Number: None

PATIENT
  Age: 45 Year
  Sex: Male
  Weight: 87.1 kg

DRUGS (2)
  1. VANCOMYCIN [Suspect]
     Indication: STAPHYLOCOCCAL INFECTION
     Route: 042
     Dates: start: 20140525, end: 20140602
  2. PIPERACILLIN/TAZOBACTAM [Suspect]
     Route: 042
     Dates: start: 20140525, end: 20140603

REACTIONS (6)
  - Renal failure acute [None]
  - Antibiotic level above therapeutic [None]
  - Eosinophilia [None]
  - Rash [None]
  - Septic shock [None]
  - Nephritis [None]
